FAERS Safety Report 16164761 (Version 1)
Quarter: 2019Q2

REPORT INFORMATION
  Report Type: Spontaneous
  Country: SE (occurrence: SE)
  Receive Date: 20190405
  Receipt Date: 20190405
  Transmission Date: 20190711
  Serious: Yes (Death, Hospitalization)
  Sender: FDA-Public Use
  Company Number: PHHY2002SE003378

PATIENT
  Age: 61 Year
  Sex: Female

DRUGS (7)
  1. BETAPRED [Suspect]
     Active Substance: BETAMETHASONE SODIUM PHOSPHATE
     Indication: PROPHYLAXIS
     Dosage: 8 MG, UNK
     Route: 042
     Dates: start: 20020108, end: 20020108
  2. MITOMYCIN. [Concomitant]
     Active Substance: MITOMYCIN
     Indication: PRODUCT USED FOR UNKNOWN INDICATION
     Dosage: UNK UNK, OT
     Route: 042
  3. ZOFRAN [Suspect]
     Active Substance: ONDANSETRON HYDROCHLORIDE
     Indication: PROPHYLAXIS
     Dosage: 8 MG, UNK
     Route: 042
     Dates: start: 20020108, end: 20020108
  4. 5 FLUOROURACIL [Concomitant]
     Active Substance: FLUOROURACIL
     Indication: PRODUCT USED FOR UNKNOWN INDICATION
     Dosage: UNK
     Route: 042
  5. EPIRUBICIN [Concomitant]
     Active Substance: EPIRUBICIN
     Indication: PRODUCT USED FOR UNKNOWN INDICATION
     Dosage: UNK UNK, OT
     Route: 042
  6. ISOVORIN [Concomitant]
     Active Substance: LEUCOVORIN CALCIUM
     Indication: PRODUCT USED FOR UNKNOWN INDICATION
     Dosage: UNK UNK, OT
     Route: 042
  7. ELOXATIN [Suspect]
     Active Substance: OXALIPLATIN
     Indication: HEPATIC CANCER
     Dosage: 135 MG/M2, UNK
     Route: 042
     Dates: start: 20020108, end: 20020108

REACTIONS (16)
  - Pulmonary infarction [Unknown]
  - Oxygen saturation decreased [Unknown]
  - Pleural effusion [Unknown]
  - Pericardial effusion [Unknown]
  - Flushing [Unknown]
  - Blood potassium increased [Unknown]
  - Blood creatinine increased [Unknown]
  - Diarrhoea [Fatal]
  - Cardiac failure [Unknown]
  - Back pain [Unknown]
  - Pulmonary oedema [Unknown]
  - Erythema [Unknown]
  - Pain in extremity [Unknown]
  - Cardiac hypertrophy [Unknown]
  - Pulmonary embolism [Fatal]
  - Myocardial fibrosis [Unknown]

NARRATIVE: CASE EVENT DATE: 20020108
